FAERS Safety Report 10006661 (Version 1)
Quarter: 2014Q1

REPORT INFORMATION
  Report Type: Spontaneous
  Country: US (occurrence: US)
  Receive Date: 20140313
  Receipt Date: 20140313
  Transmission Date: 20141002
  Serious: No
  Sender: FDA-Public Use
  Company Number: US-PFIZER INC-2014068537

PATIENT
  Sex: Male

DRUGS (1)
  1. SILDENAFIL CITRATE [Suspect]
     Indication: HEPATIC FUNCTION ABNORMAL
     Dosage: 20 MG FIVE TIMES A DAY

REACTIONS (4)
  - Malaise [Unknown]
  - Hypoaesthesia [Unknown]
  - Muscular weakness [Unknown]
  - Tremor [Unknown]
